FAERS Safety Report 18276428 (Version 2)
Quarter: 2022Q1

REPORT INFORMATION
  Report Type: Spontaneous
  Country: US (occurrence: US)
  Receive Date: 20200917
  Receipt Date: 20220107
  Transmission Date: 20220423
  Serious: Yes (Death, Hospitalization, Other)
  Sender: FDA-Public Use
  Company Number: US-GLAXOSMITHKLINE-US2020GSK186394

PATIENT
  Sex: Male

DRUGS (3)
  1. ZANTAC [Suspect]
     Active Substance: RANITIDINE HYDROCHLORIDE
     Indication: Eructation
     Dosage: UNK UNK, BID
     Route: 048
     Dates: start: 2011, end: 2018
  2. ZANTAC [Suspect]
     Active Substance: RANITIDINE HYDROCHLORIDE
     Indication: Eructation
     Dosage: UNK, BID
     Route: 065
     Dates: start: 2011, end: 2018
  3. RANITIDINE HYDROCHLORIDE [Suspect]
     Active Substance: RANITIDINE HYDROCHLORIDE
     Indication: Product used for unknown indication
     Dosage: UNK
     Route: 065

REACTIONS (15)
  - Hepatic cancer [Fatal]
  - Alcoholic liver disease [Unknown]
  - Hepatic cyst [Unknown]
  - Hepatic failure [Unknown]
  - Hepatic lesion [Unknown]
  - Hepatitis alcoholic [Unknown]
  - Cirrhosis alcoholic [Unknown]
  - Haematemesis [Unknown]
  - Hepatic cancer stage IV [Unknown]
  - Hepatocellular carcinoma [Unknown]
  - Liver disorder [Unknown]
  - Hepatic function abnormal [Unknown]
  - Cholelithiasis [Unknown]
  - Hepatic mass [Unknown]
  - Alcohol abuse [Unknown]

NARRATIVE: CASE EVENT DATE: 20170101
